FAERS Safety Report 22256639 (Version 1)
Quarter: 2023Q2

REPORT INFORMATION
  Report Type: Other
  Country: CN (occurrence: CN)
  Receive Date: 20230426
  Receipt Date: 20230426
  Transmission Date: 20230721
  Serious: Yes (Death)
  Sender: FDA-Public Use
  Company Number: CN-CSTONE PHARMACEUTICALS (SUZHOU) CO., LTD.-2023CN00636

PATIENT
  Age: 63 Year
  Sex: Male

DRUGS (1)
  1. AYVAKIT [Suspect]
     Active Substance: AVAPRITINIB
     Indication: Gastrointestinal stromal tumour
     Dosage: UNK UNK, UNKNOWN
     Route: 048
     Dates: start: 20220829, end: 20230120

REACTIONS (1)
  - Death [Fatal]

NARRATIVE: CASE EVENT DATE: 20230320
